FAERS Safety Report 10595931 (Version 1)
Quarter: 2014Q4

REPORT INFORMATION
  Report Type: Spontaneous
  Country: US (occurrence: US)
  Receive Date: 20141120
  Receipt Date: 20141120
  Transmission Date: 20150529
  Serious: No
  Sender: FDA-Public Use
  Company Number: US-PFIZER INC-2014317974

PATIENT
  Age: 72 Year
  Sex: Male
  Weight: 82 kg

DRUGS (4)
  1. LIPITOR [Suspect]
     Active Substance: ATORVASTATIN CALCIUM
     Dosage: UNK
     Dates: start: 2005
  2. METOPROLOL [Concomitant]
     Active Substance: METOPROLOL
     Dosage: 25MG IN THE MORNING AND 50MG AT NIGHT
  3. HUMALOG [Concomitant]
     Active Substance: INSULIN LISPRO
     Dosage: 75/25, 3X/DAY
  4. LANTUS [Concomitant]
     Active Substance: INSULIN GLARGINE
     Dosage: 20 ML, 1X/DAY AT NIGHT

REACTIONS (1)
  - Blood potassium increased [Unknown]
